FAERS Safety Report 6155474-5 (Version None)
Quarter: 2009Q2

REPORT INFORMATION
  Report Type: 
  Country: None (occurrence: None)
  Receive Date: 20090415
  Receipt Date: 20090415
  Transmission Date: 20091009
  Serious: Yes (Hospitalization)
  Sender: FDA-Public Use
  Company Number: PHHO2007FR05465

PATIENT
  Sex: Female

DRUGS (2)
  1. CGS 20267 T30748+ [Suspect]
     Dosage: 2.5 MG, QD
     Route: 048
     Dates: start: 20030206
  2. TAMOXIFEN CITRATE [Suspect]
     Dosage: 20 MG, QD
     Dates: end: 20070831

REACTIONS (4)
  - HYSTERECTOMY [None]
  - METRORRHAGIA [None]
  - POLYP [None]
  - UTERINE LEIOMYOMA [None]
